FAERS Safety Report 7096155-3 (Version None)
Quarter: 2010Q4

REPORT INFORMATION
  Report Type: 
  Country: None (occurrence: None)
  Receive Date: 20101111
  Receipt Date: 20101029
  Transmission Date: 20110411
  Serious: Yes (Other)
  Sender: FDA-Public Use
  Company Number: JP-ROCHE-738200

PATIENT
  Sex: Female

DRUGS (20)
  1. PEGASYS [Suspect]
     Dosage: DOSAGE IS UNCERTAIN
     Route: 058
     Dates: start: 20071113, end: 20080422
  2. PEGASYS [Suspect]
     Route: 058
     Dates: start: 20080429, end: 20080513
  3. PEGASYS [Suspect]
     Route: 058
     Dates: start: 20080520, end: 20080722
  4. PEGASYS [Suspect]
     Route: 058
     Dates: start: 20080902, end: 20081021
  5. PEGASYS [Suspect]
     Route: 058
     Dates: start: 20081028, end: 20081104
  6. PEGASYS [Suspect]
     Route: 058
     Dates: start: 20081111, end: 20081111
  7. PEGASYS [Suspect]
     Route: 058
     Dates: start: 20081118, end: 20090106
  8. PEGASYS [Suspect]
     Route: 058
     Dates: start: 20090113, end: 20090324
  9. PEGASYS [Suspect]
     Route: 058
     Dates: start: 20090331, end: 20090428
  10. RIBAVIRIN [Suspect]
     Route: 048
     Dates: start: 20071113, end: 20071224
  11. RIBAVIRIN [Suspect]
     Route: 048
     Dates: start: 20071225, end: 20080107
  12. RIBAVIRIN [Suspect]
     Route: 048
     Dates: start: 20080108, end: 20080422
  13. RIBAVIRIN [Suspect]
     Route: 048
     Dates: start: 20080423, end: 20080728
  14. RIBAVIRIN [Suspect]
     Route: 048
     Dates: start: 20080902, end: 20081020
  15. RIBAVIRIN [Suspect]
     Route: 048
     Dates: start: 20081021, end: 20081124
  16. RIBAVIRIN [Suspect]
     Route: 048
     Dates: start: 20081125, end: 20090428
  17. OMEPRAL [Concomitant]
     Route: 048
  18. MYSLEE [Concomitant]
     Route: 048
     Dates: start: 20080708
  19. BIOFERMIN [Concomitant]
     Route: 048
  20. DEPAS [Concomitant]
     Route: 048
     Dates: start: 20080429

REACTIONS (7)
  - ANAEMIA [None]
  - DIZZINESS [None]
  - FALL [None]
  - INSOMNIA [None]
  - LOSS OF CONSCIOUSNESS [None]
  - PALPITATIONS [None]
  - PYREXIA [None]
